FAERS Safety Report 6621651-X (Version None)
Quarter: 2010Q1

REPORT INFORMATION
  Report Type: 
  Country: None (occurrence: None)
  Receive Date: 20100309
  Receipt Date: 20100106
  Transmission Date: 20100710
  Serious: Yes (Hospitalization, Other)
  Sender: FDA-Public Use
  Company Number: NZ-AMGEN-QUU395494

PATIENT
  Sex: Female

DRUGS (6)
  1. NEUPOGEN [Suspect]
     Indication: CHEMOTHERAPY
     Route: 058
     Dates: start: 20090914, end: 20090923
  2. MABTHERA [Concomitant]
     Dates: start: 20090911
  3. VINCRISTINE [Concomitant]
     Dates: start: 20090911
  4. CYCLOPHOSPHAMIDE [Concomitant]
     Dates: start: 20090911
  5. ETOPOSIDE [Concomitant]
     Dates: start: 20090911
  6. PREDNISONE [Concomitant]
     Dates: start: 20090911, end: 20090915

REACTIONS (2)
  - DRUG INEFFECTIVE [None]
  - FEBRILE NEUTROPENIA [None]
